FAERS Safety Report 9003196 (Version 1)
Quarter: 2013Q1

REPORT INFORMATION
  Report Type: Report from Study
  Country: LB (occurrence: LB)
  Receive Date: 20130108
  Receipt Date: 20130108
  Transmission Date: 20140127
  Serious: Yes (Other)
  Sender: FDA-Public Use
  Company Number: LB-VERTEX PHARMACEUTICALS INC.-2013-000341

PATIENT
  Sex: 0

DRUGS (1)
  1. VX-950 (TELAPREVIR) [Suspect]
     Indication: HEPATITIS C
     Route: 048

REACTIONS (1)
  - Rash [Unknown]
